FAERS Safety Report 8470575-4 (Version None)
Quarter: 2012Q2

REPORT INFORMATION
  Report Type: 
  Country: None (occurrence: None)
  Receive Date: 20120627
  Receipt Date: 20120622
  Transmission Date: 20120825
  Serious: Yes (Other)
  Sender: FDA-Public Use
  Company Number: PHEH2012US011123

PATIENT
  Sex: Female
  Weight: 95.238 kg

DRUGS (15)
  1. SYNTHROID [Concomitant]
     Dosage: 112 UG, UNK
  2. DILTIAZEM HYDROCHOLORIDE [Concomitant]
     Dosage: 300 MG, UNK
  3. FIBERCON (POLYCARBOPHIL) [Concomitant]
     Dosage: 625 MG, UNK
  4. GILENYA [Suspect]
     Indication: MULTIPLE SCLEROSIS
     Dosage: 0.5 MG, QD
     Route: 048
     Dates: start: 20120522
  5. BENTYL [Concomitant]
     Dosage: 20 MG, UNK
  6. IBUPROFEN [Concomitant]
     Dosage: 200 MG, UNK
  7. SEASONIQUE [Concomitant]
     Dosage: UNK UKN, UNK
  8. MIRALAX [Concomitant]
     Dosage: UNK UKN, UNK
  9. MULTI-VITAMINS [Concomitant]
     Dosage: UNK UKN, UNK
  10. NORTRIPTYLINE HYDROCHLORIDE [Concomitant]
     Dosage: 25 MG, UNK
  11. PREVACID [Concomitant]
     Dosage: 30 MG, UNK
  12. HYDROCHLOROTHIAZIDE [Concomitant]
     Dosage: 12.5 MG, UNK
  13. MACRODANTIN [Concomitant]
     Dosage: 25 MG, UNK
  14. NEURONTIN [Concomitant]
     Dosage: 100 MG, UNK
  15. DITROPAN XL [Concomitant]
     Dosage: 10 MG, UNK

REACTIONS (3)
  - NAUSEA [None]
  - HYPOAESTHESIA [None]
  - HAEMORRHAGIC DIATHESIS [None]
